FAERS Safety Report 5382660-4 (Version None)
Quarter: 2007Q3

REPORT INFORMATION
  Report Type: 
  Country: None (occurrence: None)
  Receive Date: 20070703
  Receipt Date: 20070703
  Transmission Date: 20080115
  Serious: No
  Sender: FDA-Public Use
  Company Number: None

PATIENT
  Age: 28 Year
  Sex: Female
  Weight: 65.7716 kg

DRUGS (2)
  1. LEVOFLOXACIN [Suspect]
     Indication: SINUSITIS
     Dosage: 500MG 1TAB QD X 10 DAYS
  2. LEVOFLOXACIN [Suspect]
     Indication: UPPER RESPIRATORY TRACT INFECTION
     Dosage: 500MG 1TAB QD X 10 DAYS

REACTIONS (47)
  - ABNORMAL BEHAVIOUR [None]
  - ADVERSE DRUG REACTION [None]
  - AGEUSIA [None]
  - AGGRESSION [None]
  - AMNESIA [None]
  - ANGER [None]
  - ANOREXIA [None]
  - ANXIETY [None]
  - BACK PAIN [None]
  - BRAIN DAMAGE [None]
  - CHILLS [None]
  - CONFUSIONAL STATE [None]
  - CRYING [None]
  - DEPERSONALISATION [None]
  - DEPRESSED MOOD [None]
  - DEPRESSION [None]
  - DISTURBANCE IN ATTENTION [None]
  - DYSGEUSIA [None]
  - EMOTIONAL DISORDER [None]
  - EUPHORIC MOOD [None]
  - FEELING ABNORMAL [None]
  - FEELING DRUNK [None]
  - FOOD AVERSION [None]
  - HALLUCINATION, VISUAL [None]
  - HEADACHE [None]
  - HOT FLUSH [None]
  - HYPOAESTHESIA [None]
  - INGROWING NAIL [None]
  - INITIAL INSOMNIA [None]
  - INSOMNIA [None]
  - MEMORY IMPAIRMENT [None]
  - MENTAL STATUS CHANGES [None]
  - MOOD SWINGS [None]
  - MUSCULOSKELETAL PAIN [None]
  - NECK PAIN [None]
  - NERVE INJURY [None]
  - NERVOUS SYSTEM DISORDER [None]
  - NIGHTMARE [None]
  - PSYCHOMOTOR HYPERACTIVITY [None]
  - RESTLESSNESS [None]
  - SENSATION OF PRESSURE [None]
  - SOMNOLENCE [None]
  - THINKING ABNORMAL [None]
  - TINNITUS [None]
  - VISION BLURRED [None]
  - VISUAL DISTURBANCE [None]
  - WEIGHT DECREASED [None]
